FAERS Safety Report 24680430 (Version 1)
Quarter: 2024Q4

REPORT INFORMATION
  Report Type: Spontaneous
  Country: DE (occurrence: DE)
  Receive Date: 20241129
  Receipt Date: 20241129
  Transmission Date: 20250114
  Serious: Yes (Hospitalization, Other)
  Sender: PFIZER
  Company Number: None

PATIENT
  Age: 20 Year
  Sex: Female
  Weight: 46 kg

DRUGS (1)
  1. MEDROXYPROGESTERONE ACETATE [Suspect]
     Active Substance: MEDROXYPROGESTERONE ACETATE
     Indication: Contraception
     Dosage: UNK
     Dates: end: 20241119

REACTIONS (1)
  - Brain neoplasm [Recovered/Resolved with Sequelae]

NARRATIVE: CASE EVENT DATE: 20200430
